FAERS Safety Report 5081959-9 (Version None)
Quarter: 2006Q3

REPORT INFORMATION
  Report Type: 
  Country: None (occurrence: None)
  Receive Date: 20060811
  Receipt Date: 20060726
  Transmission Date: 20061208
  Serious: Yes (Death, Life-Threatening, Other)
  Sender: FDA-Public Use
  Company Number: 2005JP002100

PATIENT
  Age: 58 Year
  Sex: Male
  Weight: 54 kg

DRUGS (8)
  1. PROGRAF [Suspect]
     Indication: LUNG TRANSPLANT
     Dosage: SEE IMAGE
     Route: 048
     Dates: start: 20051011, end: 20051011
  2. PROGRAF [Suspect]
     Indication: LUNG TRANSPLANT
     Dosage: SEE IMAGE
     Route: 048
     Dates: start: 20051012, end: 20051012
  3. PROGRAF [Suspect]
     Indication: LUNG TRANSPLANT
     Dosage: SEE IMAGE
     Route: 048
     Dates: start: 20051013, end: 20051016
  4. PROGRAF [Suspect]
     Indication: LUNG TRANSPLANT
     Dosage: SEE IMAGE
     Route: 048
     Dates: start: 20051017, end: 20051019
  5. NEORAL [Suspect]
     Indication: LUNG TRANSPLANT
     Dosage: SEE IMAGE
     Route: 048
     Dates: start: 20050929, end: 20051019
  6. NEORAL [Suspect]
     Indication: LUNG TRANSPLANT
     Dosage: SEE IMAGE
     Route: 048
     Dates: start: 20051020, end: 20051021
  7. SANDIMMUNE [Suspect]
     Indication: LUNG TRANSPLANT
     Dosage: SEE IMAGE
     Dates: start: 20050823, end: 20050928
  8. SANDIMMUNE [Suspect]
     Indication: LUNG TRANSPLANT
     Dosage: SEE IMAGE
     Dates: start: 20051022, end: 20051102

REACTIONS (15)
  - BLOOD LACTATE DEHYDROGENASE DECREASED [None]
  - BRAIN OEDEMA [None]
  - CONDITION AGGRAVATED [None]
  - DEPRESSED LEVEL OF CONSCIOUSNESS [None]
  - HAEMATOMA [None]
  - HAEMOLYTIC ANAEMIA [None]
  - HEPATIC FUNCTION ABNORMAL [None]
  - LEUKOENCEPHALOPATHY [None]
  - MULTI-ORGAN FAILURE [None]
  - PLATELET COUNT DECREASED [None]
  - PSEUDOMONAS INFECTION [None]
  - RENAL DISORDER [None]
  - SEPSIS [None]
  - STRESS [None]
  - THROMBOTIC MICROANGIOPATHY [None]
